FAERS Safety Report 16801346 (Version 1)
Quarter: 2019Q3

REPORT INFORMATION
  Report Type: Report from Study
  Country: US (occurrence: US)
  Receive Date: 20190912
  Receipt Date: 20190912
  Transmission Date: 20191005
  Serious: Yes (Death)
  Sender: FDA-Public Use
  Company Number: US-PFIZER INC-2019294734

PATIENT
  Age: 82 Year
  Sex: Female

DRUGS (1)
  1. IBRANCE [Suspect]
     Active Substance: PALBOCICLIB
     Indication: BREAST CANCER FEMALE
     Dosage: 75 MG DAILY, CYCLIC [21 DAYS, THEN 7 DAYS OFF]
     Route: 048
     Dates: start: 20190529

REACTIONS (3)
  - Blood calcium increased [Unknown]
  - Death [Fatal]
  - Product dose omission [Unknown]

NARRATIVE: CASE EVENT DATE: 2019
